FAERS Safety Report 11443053 (Version 1)
Quarter: 2015Q3

REPORT INFORMATION
  Report Type: Spontaneous
  Country: KR (occurrence: KR)
  Receive Date: 20150901
  Receipt Date: 20150901
  Transmission Date: 20151125
  Serious: Yes (Death, Life-Threatening, Hospitalization, Other)
  Sender: FDA-Public Use
  Company Number: KR-BAYER-2015-405969

PATIENT
  Age: 74 Year
  Sex: Male

DRUGS (1)
  1. MOXIFLOXACIN ORAL [Suspect]
     Active Substance: MOXIFLOXACIN

REACTIONS (6)
  - General physical health deterioration [Fatal]
  - Hypoxia [None]
  - Treatment failure [None]
  - Multi-organ failure [Fatal]
  - Pneumothorax [None]
  - Septic shock [Fatal]
